FAERS Safety Report 8514262-2 (Version None)
Quarter: 2012Q3

REPORT INFORMATION
  Report Type: 
  Country: None (occurrence: None)
  Receive Date: 20120717
  Receipt Date: 20120706
  Transmission Date: 20120928
  Serious: Yes (Other)
  Sender: FDA-Public Use
  Company Number: US-PFIZER INC-2012163880

PATIENT
  Age: 58 Year
  Sex: Female

DRUGS (20)
  1. PLAVIX [Concomitant]
     Dosage: UNK
  2. PROTONIX [Concomitant]
     Dosage: UNK
  3. NPH INSULIN [Concomitant]
     Dosage: UNK
  4. ZOCOR [Suspect]
     Dosage: 40 MG, UID/QD
  5. ASPIRIN [Concomitant]
     Dosage: UNK
  6. VESICARE [Suspect]
     Indication: STRESS URINARY INCONTINENCE
     Dosage: 10 MG, UID/QD
     Route: 048
     Dates: start: 20111217, end: 20120101
  7. COREG [Concomitant]
     Dosage: UNK
  8. CENTRUM [Concomitant]
     Dosage: UNK
  9. IMDUR [Concomitant]
     Dosage: UNK
  10. CELEXA [Concomitant]
     Dosage: UNK
  11. METFORMIN [Concomitant]
     Dosage: UNK
  12. VESICARE [Suspect]
     Dosage: 5 MG, UID/QD
     Route: 048
     Dates: start: 20120101, end: 20120203
  13. LOVAZA [Concomitant]
     Dosage: UNK
  14. TOVIAZ [Suspect]
     Indication: STRESS URINARY INCONTINENCE
     Dosage: UNK
     Dates: start: 20120204, end: 20120301
  15. LEVOTHYROXINE [Concomitant]
     Dosage: UNK
  16. NOVOLOG [Concomitant]
     Dosage: UNK
  17. MELATONIN [Concomitant]
     Dosage: UNK
  18. COZAAR [Concomitant]
     Dosage: UNK
  19. CALCIUM/MINERALS/VITAMIN D [Concomitant]
     Dosage: UNK
  20. GLIPIZIDE [Concomitant]
     Dosage: UNK

REACTIONS (5)
  - HYPOGLYCAEMIA [None]
  - DRUG INEFFECTIVE [None]
  - ABNORMAL BEHAVIOUR [None]
  - THINKING ABNORMAL [None]
  - HEADACHE [None]
